FAERS Safety Report 8601207-X (Version None)
Quarter: 2012Q3

REPORT INFORMATION
  Report Type: 
  Country: None (occurrence: None)
  Receive Date: 20120817
  Receipt Date: 20120810
  Transmission Date: 20120928
  Serious: Yes (Hospitalization)
  Sender: FDA-Public Use
  Company Number: PHHY2012IT069948

PATIENT
  Sex: Male

DRUGS (2)
  1. METHADONE HYDROCHLORIDE [Suspect]
     Dosage: 225 MG
     Route: 048
     Dates: start: 20120313, end: 20120313
  2. LORAZEPAM [Suspect]
     Dosage: 20 DF
     Route: 048
     Dates: start: 20120313, end: 20120313

REACTIONS (4)
  - SUICIDE ATTEMPT [None]
  - SOMNOLENCE [None]
  - PSYCHOMOTOR HYPERACTIVITY [None]
  - OVERDOSE [None]
